FAERS Safety Report 22625045 (Version 1)
Quarter: 2023Q2

REPORT INFORMATION
  Report Type: Spontaneous
  Country: US (occurrence: None)
  Receive Date: 20230620
  Receipt Date: 20230620
  Transmission Date: 20230721
  Serious: Yes (Other)
  Sender: FDA-Public Use
  Company Number: None

PATIENT
  Age: 56 Year
  Sex: Female
  Weight: 141.75 kg

DRUGS (8)
  1. OZEMPIC [Suspect]
     Active Substance: SEMAGLUTIDE
     Indication: Weight decreased
     Dates: start: 20230407
  2. AMLODIPINE BESYLATE [Concomitant]
     Active Substance: AMLODIPINE BESYLATE
  3. Rosuvastain Calcium [Concomitant]
  4. low dose Bayer Aspirin [Concomitant]
  5. CARVEDILOL [Concomitant]
  6. OZEMPIC [Concomitant]
     Active Substance: SEMAGLUTIDE
  7. NEXIUM [Concomitant]
     Active Substance: ESOMEPRAZOLE MAGNESIUM
  8. Marilax [Concomitant]

REACTIONS (7)
  - Constipation [None]
  - Vomiting [None]
  - Nausea [None]
  - Vision blurred [None]
  - Abdominal distension [None]
  - Fatigue [None]
  - Pain in extremity [None]

NARRATIVE: CASE EVENT DATE: 20230407
